FAERS Safety Report 4447728-5 (Version None)
Quarter: 2004Q3

REPORT INFORMATION
  Report Type: 
  Country: None (occurrence: None)
  Receive Date: 20040819
  Receipt Date: 20030728
  Transmission Date: 20050211
  Serious: Yes (Life-Threatening)
  Sender: FDA-Public Use
  Company Number: 230858

PATIENT
  Age: 68 Year
  Sex: Male

DRUGS (5)
  1. NOVOLIN R [Suspect]
     Indication: DIABETES MELLITUS
     Dosage: SUBCUTANEOUS
     Route: 058
  2. NOVOLIN N [Concomitant]
  3. INNOVO (INSULIN DELIVERY DEVICE) [Concomitant]
  4. LASIX [Concomitant]
  5. DIGOXIN [Concomitant]

REACTIONS (1)
  - HYPOGLYCAEMIC COMA [None]
